FAERS Safety Report 4708867-4 (Version None)
Quarter: 2005Q3

REPORT INFORMATION
  Report Type: 
  Country: None (occurrence: None)
  Receive Date: 20050707
  Receipt Date: 20050620
  Transmission Date: 20060218
  Serious: Yes (Hospitalization, Other)
  Sender: FDA-Public Use
  Company Number: 2005090669

PATIENT
  Sex: Female
  Weight: 77.1115 kg

DRUGS (5)
  1. DETROL LA [Suspect]
     Indication: HYPERTONIC BLADDER
     Dosage: 4 MG (4 MG 1 IN 1 D)
     Route: 048
     Dates: start: 20000101
  2. THEOPHYLLINE [Concomitant]
  3. PREDNISONE [Concomitant]
  4. SALMETEROL XINAFOATE (SALMETEROL XINAFOATE) [Concomitant]
  5. FLUTICASONE PROPIONATE [Concomitant]

REACTIONS (4)
  - DRUG DISPENSING ERROR [None]
  - DRUG EFFECT DECREASED [None]
  - JOINT INJURY [None]
  - OCCUPATIONAL PHYSICAL PROBLEM [None]
